FAERS Safety Report 9386704 (Version 1)
Quarter: 2013Q3

REPORT INFORMATION
  Report Type: Spontaneous
  Country: US (occurrence: US)
  Receive Date: 20130708
  Receipt Date: 20130708
  Transmission Date: 20140515
  Serious: Yes (Other)
  Sender: FDA-Public Use
  Company Number: US-PFIZER INC-2013200245

PATIENT
  Age: 66 Year
  Sex: Female
  Weight: 63.49 kg

DRUGS (7)
  1. EFFEXOR XR [Suspect]
     Indication: MAJOR DEPRESSION
     Dosage: 300 MG (TAKING TWO CAPSULES OF 150MG), 1X/DAY
     Route: 048
     Dates: start: 2008
  2. ATIVAN [Concomitant]
     Dosage: 2 MG, 3X/DAY
  3. TRAZODONE [Concomitant]
     Dosage: UNK, 1X/DAY (ONCE AT NIGHT)
  4. METFORMIN [Concomitant]
     Indication: DIABETES MELLITUS
     Dosage: 500 MG, 2X/DAY
     Route: 048
  5. LISINOPRIL [Concomitant]
     Indication: HYPERTENSION
     Dosage: 20 MG, UNK
  6. GLIPIZIDE [Concomitant]
     Indication: DIABETES MELLITUS
     Dosage: 10 MG, UNK
  7. GABAPENTIN [Concomitant]
     Dosage: 100 MG, 2X/DAY
     Route: 048

REACTIONS (5)
  - Colitis [Unknown]
  - Cholelithiasis [Unknown]
  - Fatigue [Unknown]
  - Somnolence [Unknown]
  - Feeling abnormal [Unknown]
